FAERS Safety Report 25789728 (Version 1)
Quarter: 2025Q3

REPORT INFORMATION
  Report Type: Spontaneous
  Country: US (occurrence: US)
  Receive Date: 20250911
  Receipt Date: 20250911
  Transmission Date: 20251021
  Serious: No
  Sender: GALDERMA
  Company Number: US-GALDERMA-US2025015432

PATIENT

DRUGS (1)
  1. NEMLUVIO [Suspect]
     Active Substance: NEMOLIZUMAB-ILTO
     Indication: Neurodermatitis
     Route: 030

REACTIONS (4)
  - Pruritus [Recovering/Resolving]
  - Skin discolouration [Recovering/Resolving]
  - Product dose omission issue [Recovered/Resolved]
  - Incorrect route of product administration [Recovered/Resolved]
